FAERS Safety Report 23395051 (Version 1)
Quarter: 2024Q1

REPORT INFORMATION
  Report Type: Spontaneous
  Country: GB (occurrence: GB)
  Receive Date: 20240112
  Receipt Date: 20240112
  Transmission Date: 20240410
  Serious: Yes (Other)
  Sender: FDA-Public Use
  Company Number: None

PATIENT
  Age: 74 Year
  Weight: 83 kg

DRUGS (6)
  1. AMLODIPINE [Suspect]
     Active Substance: AMLODIPINE BESYLATE
     Indication: Ill-defined disorder
     Route: 065
     Dates: start: 20240103
  2. AMLODIPINE [Suspect]
     Active Substance: AMLODIPINE BESYLATE
     Indication: Ill-defined disorder
     Dosage: TAKE ONE  DAILY TO REDUCE BLOOD PRESSURE
     Route: 065
     Dates: start: 20230620
  3. SILDENAFIL [Concomitant]
     Active Substance: SILDENAFIL
     Indication: Ill-defined disorder
     Dosage: 1 OD ORAL - TO BE TAKEN 1 HOUR BEFORE SEXUAL IN...
     Route: 048
     Dates: start: 20230620
  4. ATORVASTATIN [Concomitant]
     Active Substance: ATORVASTATIN
     Indication: Ill-defined disorder
     Dosage: ONE TO BE TAKEN EACH DAY
     Route: 065
     Dates: start: 20230620
  5. OMEPRAZOLE [Concomitant]
     Active Substance: OMEPRAZOLE
     Indication: Ill-defined disorder
     Dosage: ONE TO BE TAKEN EACH DAY
     Route: 065
     Dates: start: 20230620
  6. FINASTERIDE [Concomitant]
     Active Substance: FINASTERIDE
     Indication: Ill-defined disorder
     Dosage: TAKE ONE DAILY
     Route: 065
     Dates: start: 20230620

REACTIONS (1)
  - Gingival hypertrophy [Not Recovered/Not Resolved]

NARRATIVE: CASE EVENT DATE: 20240103
